FAERS Safety Report 24873768 (Version 1)
Quarter: 2025Q1

REPORT INFORMATION
  Report Type: Spontaneous
  Country: US (occurrence: US)
  Receive Date: 20250122
  Receipt Date: 20250122
  Transmission Date: 20250408
  Serious: No
  Sender: TAKEDA
  Company Number: US-TAKEDA-2025TUS006045

PATIENT
  Age: 11 Year
  Sex: Male
  Weight: 56 kg

DRUGS (8)
  1. CUVITRU [Suspect]
     Active Substance: HUMAN IMMUNOGLOBULIN G
     Indication: Selective IgG subclass deficiency
     Dosage: 35 GRAM, Q2WEEKS
     Dates: start: 20231201, end: 20250116
  2. CUVITRU [Suspect]
     Active Substance: HUMAN IMMUNOGLOBULIN G
  3. CUVITRU [Suspect]
     Active Substance: HUMAN IMMUNOGLOBULIN G
  4. CUVITRU [Suspect]
     Active Substance: HUMAN IMMUNOGLOBULIN G
  5. CUVITRU [Suspect]
     Active Substance: HUMAN IMMUNOGLOBULIN G
  6. CUVITRU [Suspect]
     Active Substance: HUMAN IMMUNOGLOBULIN G
  7. IBUPROFEN [Concomitant]
     Active Substance: IBUPROFEN
  8. ONDANSETRON [Concomitant]
     Active Substance: ONDANSETRON

REACTIONS (5)
  - Insomnia [Unknown]
  - Ocular discomfort [Unknown]
  - Decreased appetite [Unknown]
  - Headache [Unknown]
  - Abdominal pain upper [Unknown]

NARRATIVE: CASE EVENT DATE: 20250104
